FAERS Safety Report 8854580 (Version 3)
Quarter: 2012Q4

REPORT INFORMATION
  Report Type: Report from Study
  Country: JP (occurrence: JP)
  Receive Date: 20121023
  Receipt Date: 20121211
  Transmission Date: 20130627
  Serious: Yes (Other)
  Sender: FDA-Public Use
  Company Number: JP-VERTEX PHARMACEUTICAL INC.-2012-023301

PATIENT
  Age: 62 Year
  Sex: Female

DRUGS (15)
  1. VX-950 (TELAPREVIR) [Suspect]
     Indication: CHRONIC HEPATITIS C
     Dosage: 1500 mg, qd
     Route: 048
     Dates: start: 20120907, end: 20121004
  2. VX-950 (TELAPREVIR) [Suspect]
     Dosage: 500 mg, qd
     Route: 048
     Dates: start: 20121019, end: 20121101
  3. VX-950 (TELAPREVIR) [Suspect]
     Dosage: 750 mg, qd
     Route: 048
     Dates: start: 20121102, end: 20121120
  4. VX-950 (TELAPREVIR) [Suspect]
     Dosage: 1250 mg, qd
     Route: 048
     Dates: start: 20121121, end: 20121129
  5. VX-950 (TELAPREVIR) [Suspect]
     Dosage: 1500 mg, qd
     Route: 048
     Dates: start: 20121130
  6. RIBAVIRIN [Suspect]
     Indication: CHRONIC HEPATITIS C
     Dosage: 800 mg, qd
     Route: 048
     Dates: start: 20120907, end: 20121001
  7. RIBAVIRIN [Suspect]
     Dosage: 400 mg, qd
     Route: 048
     Dates: start: 20121002, end: 20121004
  8. RIBAVIRIN [Suspect]
     Dosage: 200 mg, qd
     Route: 048
     Dates: start: 20121026, end: 20121108
  9. RIBAVIRIN [Suspect]
     Dosage: 400 mg, qd
     Route: 048
     Dates: start: 20121109
  10. PEGINTERFERON ALFA-2B [Suspect]
     Indication: CHRONIC HEPATITIS C
     Dosage: 1.5 ?g/kg, qw
     Route: 058
     Dates: start: 20120907, end: 20120928
  11. PEGINTERFERON ALFA-2B [Suspect]
     Dosage: 1.5 ?g/kg,qw
     Route: 058
     Dates: start: 20121019
  12. BLOPRESS [Concomitant]
     Dosage: 4 mg, qd
     Route: 048
  13. CALBLOCK [Concomitant]
     Dosage: 16 mg, qd
     Route: 048
  14. ADALAT [Concomitant]
     Dosage: 40 mg, qd
     Route: 048
  15. FLUITRAN [Concomitant]
     Dosage: 1 mg, qd
     Route: 048

REACTIONS (2)
  - Haemoglobin decreased [Not Recovered/Not Resolved]
  - Melaena [Recovered/Resolved]
